FAERS Safety Report 14292524 (Version 1)
Quarter: 2017Q4

REPORT INFORMATION
  Report Type: Spontaneous
  Country: VN (occurrence: VN)
  Receive Date: 20171215
  Receipt Date: 20171215
  Transmission Date: 20180321
  Serious: Yes (Other)
  Sender: FDA-Public Use
  Company Number: VN-PFIZER INC-2017525424

PATIENT
  Age: 62 Year
  Sex: Female

DRUGS (9)
  1. GLUCOSAMIN [Concomitant]
     Indication: OSTEOARTHRITIS
     Dosage: 1 DF, 1X/DAY
  2. LOSARTAN STADA [Concomitant]
     Indication: OSTEOARTHRITIS
     Dosage: 50 MG, 1X/DAY
  3. CELCOXX [Concomitant]
     Indication: OSTEOARTHRITIS
     Dosage: 200 MG, 1X/DAY
  4. ALENTA [Concomitant]
     Indication: OSTEOARTHRITIS
     Dosage: 70 MG, 1X/DAY
  5. CALCIUM D 500 [Concomitant]
     Active Substance: CALCIUM\VITAMIN D
     Indication: OSTEOARTHRITIS
     Dosage: 1 DF, 2X/DAY
  6. OMEZ /00661201/ [Concomitant]
     Active Substance: OMEPRAZOLE
     Indication: OSTEOARTHRITIS
     Dosage: 20 MG, 2X/DAY
  7. PREMILIN [Concomitant]
     Indication: OSTEOARTHRITIS
     Dosage: 75 MG, 1X/DAY
  8. DEPO-MEDROL [Suspect]
     Active Substance: METHYLPREDNISOLONE ACETATE
     Indication: OSTEOARTHRITIS
     Dosage: 40 MG, 1X/DAY
  9. CONCOR [Concomitant]
     Active Substance: BISOPROLOL FUMARATE
     Indication: OSTEOARTHRITIS
     Dosage: 5 MG, 1X/DAY

REACTIONS (3)
  - Heart rate increased [Unknown]
  - Blood pressure increased [Unknown]
  - Generalised oedema [Recovered/Resolved]
